FAERS Safety Report 5762863-7 (Version None)
Quarter: 2008Q2

REPORT INFORMATION
  Report Type: 
  Country: None (occurrence: None)
  Receive Date: 20080609
  Receipt Date: 20080605
  Transmission Date: 20081010
  Serious: Yes (Hospitalization)
  Sender: FDA-Public Use
  Company Number: JP-JNJFOC-20080601332

PATIENT
  Age: 8 Year
  Sex: Male

DRUGS (3)
  1. ACETAMINOPHEN [Suspect]
  2. ACETAMINOPHEN [Suspect]
     Indication: PYREXIA
  3. CEFDINIR [Suspect]
     Indication: PYREXIA

REACTIONS (2)
  - ERYTHEMA MULTIFORME [None]
  - VANISHING BILE DUCT SYNDROME [None]
